FAERS Safety Report 6418359-2 (Version None)
Quarter: 2009Q4

REPORT INFORMATION
  Report Type: 
  Country: None (occurrence: None)
  Receive Date: 20091026
  Receipt Date: 20090828
  Transmission Date: 20100525
  Serious: No
  Sender: FDA-Public Use
  Company Number: US-000760

PATIENT
  Sex: Male
  Weight: 81.6475 kg

DRUGS (7)
  1. DEGARELIX 240 MG [Suspect]
     Indication: PROSTATE CANCER
     Dosage: (SUBCUTANEOUS)
     Route: 058
     Dates: start: 20090826, end: 20090826
  2. ASPIRINA /00002701/ [Concomitant]
  3. ULTRAM [Concomitant]
  4. ZINC [Concomitant]
  5. STOOL SOFTENER [Concomitant]
  6. COENZYME Q10 /00517201/ [Concomitant]
  7. SIMVASTATIN [Concomitant]

REACTIONS (5)
  - INJECTION SITE ERYTHEMA [None]
  - INJECTION SITE PAIN [None]
  - INJECTION SITE SWELLING [None]
  - PYREXIA [None]
  - URINARY RETENTION [None]
